FAERS Safety Report 19240732 (Version 1)
Quarter: 2021Q2

REPORT INFORMATION
  Report Type: Spontaneous
  Country: NL (occurrence: NL)
  Receive Date: 20210511
  Receipt Date: 20210511
  Transmission Date: 20210717
  Serious: Yes (Other)
  Sender: FDA-Public Use
  Company Number: NL-JNJFOC-20210509872

PATIENT
  Sex: Female
  Weight: 65 kg

DRUGS (2)
  1. REMICADE [Suspect]
     Active Substance: INFLIXIMAB
     Indication: CROHN^S DISEASE
     Dosage: 1X PER 8 WEKEN EEN INFUUS
     Route: 042
     Dates: start: 200806, end: 20210402
  2. SALAZOPYRINE [Concomitant]
     Active Substance: SULFASALAZINE
     Dosage: 3 X PER DAG 2 TABLETTEN VAN 500 MG

REACTIONS (2)
  - Hypersensitivity [Unknown]
  - Iris melanoma [Unknown]
